FAERS Safety Report 5248414-4 (Version None)
Quarter: 2007Q1

REPORT INFORMATION
  Report Type: 
  Country: None (occurrence: None)
  Receive Date: 20070227
  Receipt Date: 20070222
  Transmission Date: 20070707
  Serious: Yes (Death)
  Sender: FDA-Public Use
  Company Number: US-SHR-US-2007-006394

PATIENT
  Age: 71 Year
  Sex: Male

DRUGS (1)
  1. MAGNEVIST [Suspect]
     Dosage: UNK, 1 DOSE
     Route: 042
     Dates: start: 20020817, end: 20020817

REACTIONS (1)
  - NEPHROGENIC FIBROSING DERMOPATHY [None]
